FAERS Safety Report 7315846-X (Version None)
Quarter: 2011Q1

REPORT INFORMATION
  Report Type: 
  Country: None (occurrence: None)
  Receive Date: 20110217
  Receipt Date: 20110217
  Transmission Date: 20110831
  Serious: Yes (Hospitalization)
  Sender: FDA-Public Use
  Company Number: None

PATIENT
  Age: 76 Year
  Sex: Male
  Weight: 68.7 kg

DRUGS (1)
  1. CAPECITABINE [Suspect]
     Indication: RECTAL CANCER
     Dosage: 1500 MG BID PO
     Route: 048
     Dates: start: 20100805, end: 20101114

REACTIONS (8)
  - DIARRHOEA [None]
  - NEUTROPENIA [None]
  - ALOPECIA [None]
  - LEUKOPENIA [None]
  - VOMITING [None]
  - THROMBOCYTOPENIA [None]
  - HYPOTENSION [None]
  - NAUSEA [None]
